FAERS Safety Report 8180961-8 (Version None)
Quarter: 2012Q1

REPORT INFORMATION
  Report Type: 
  Country: None (occurrence: None)
  Receive Date: 20120302
  Receipt Date: 20120223
  Transmission Date: 20120608
  Serious: Yes (Death)
  Sender: FDA-Public Use
  Company Number: US-MPIJNJ-2012-01293

PATIENT
  Age: 66 Year
  Sex: Male
  Weight: 80.272 kg

DRUGS (1)
  1. VELCADE [Suspect]
     Indication: MULTIPLE MYELOMA
     Dosage: 1 MG/M2, 1/WEEK
     Route: 042
     Dates: start: 20110228, end: 20111227

REACTIONS (1)
  - DEATH [None]
